FAERS Safety Report 15374053 (Version 2)
Quarter: 2018Q3

REPORT INFORMATION
  Report Type: Spontaneous
  Country: IE (occurrence: IE)
  Receive Date: 20180912
  Receipt Date: 20180912
  Transmission Date: 20181010
  Serious: Yes (Hospitalization, Other)
  Sender: FDA-Public Use
  Company Number: PHHY2018IE093909

PATIENT
  Age: 65 Year
  Sex: Male

DRUGS (2)
  1. ELTROMBOPAG [Suspect]
     Active Substance: ELTROMBOPAG
     Indication: PLATELET COUNT ABNORMAL
     Dosage: UNK
     Route: 065
  2. CICLOSPORIN [Suspect]
     Active Substance: CYCLOSPORINE
     Indication: APLASTIC ANAEMIA
     Dosage: UNK
     Route: 065

REACTIONS (5)
  - Haemosiderosis [Unknown]
  - Gastrointestinal haemorrhage [Recovering/Resolving]
  - Liver function test abnormal [Recovering/Resolving]
  - Hepatitis [Unknown]
  - Lymphocytic infiltration [Unknown]
